FAERS Safety Report 10622463 (Version 1)
Quarter: 2014Q4

REPORT INFORMATION
  Report Type: Spontaneous
  Country: US (occurrence: None)
  Receive Date: 20141201
  Receipt Date: 20141201
  Transmission Date: 20150529
  Serious: Yes (Other)
  Sender: FDA-Public Use
  Company Number: None

PATIENT
  Age: 20 Year
  Sex: Male
  Weight: 49.9 kg

DRUGS (1)
  1. MYDRIACYL [Suspect]
     Active Substance: TROPICAMIDE
     Indication: PUPIL DILATION PROCEDURE
     Route: 047

REACTIONS (10)
  - Hypoacusis [None]
  - Vision blurred [None]
  - Tinnitus [None]
  - Consciousness fluctuating [None]
  - Somnolence [None]
  - Pallor [None]
  - Hyperhidrosis [None]
  - Feeling abnormal [None]
  - Head discomfort [None]
  - Presyncope [None]

NARRATIVE: CASE EVENT DATE: 20141125
